FAERS Safety Report 17429908 (Version 1)
Quarter: 2020Q1

REPORT INFORMATION
  Report Type: Spontaneous
  Country: US (occurrence: US)
  Receive Date: 20200218
  Receipt Date: 20200218
  Transmission Date: 20200409
  Serious: No
  Sender: FDA-Public Use
  Company Number: US-PFIZER INC-2020066000

PATIENT
  Age: 56 Year
  Sex: Female

DRUGS (1)
  1. ADVIL PM [Suspect]
     Active Substance: DIPHENHYDRAMINE CITRATE\IBUPROFEN
     Dosage: 2 CAPLETS, 30 MINS BEFORE BEDTIME

REACTIONS (3)
  - Therapeutic product effect incomplete [Unknown]
  - Somnolence [Unknown]
  - Feeling abnormal [Unknown]
